FAERS Safety Report 6523638-4 (Version None)
Quarter: 2009Q4

REPORT INFORMATION
  Report Type: 
  Country: None (occurrence: None)
  Receive Date: 20091231
  Receipt Date: 20091230
  Transmission Date: 20100525
  Serious: Yes (Death)
  Sender: FDA-Public Use
  Company Number: PHHY2009TR59412

PATIENT

DRUGS (2)
  1. STARLIX [Suspect]
     Dosage: UNK
  2. PIOGLITAZONE [Concomitant]
     Dosage: UNK

REACTIONS (1)
  - DEATH [None]
